FAERS Safety Report 21883537 (Version 1)
Quarter: 2023Q1

REPORT INFORMATION
  Report Type: Spontaneous
  Country: US (occurrence: None)
  Receive Date: 20230118
  Receipt Date: 20230118
  Transmission Date: 20230418
  Serious: No
  Sender: FDA-Public Use
  Company Number: None

PATIENT
  Sex: Female

DRUGS (1)
  1. DUPIXENT [Suspect]
     Active Substance: DUPILUMAB
     Indication: Asthma
     Dosage: OTHER QUANTITY : 600MG/300MG;?FREQUENCY : AS DIRECTED;?
     Route: 058

REACTIONS (4)
  - Device leakage [None]
  - Product colour issue [None]
  - Liquid product physical issue [None]
  - Product dose omission issue [None]
